FAERS Safety Report 6509555-4 (Version None)
Quarter: 2009Q4

REPORT INFORMATION
  Report Type: 
  Country: None (occurrence: None)
  Receive Date: 20091222
  Receipt Date: 20091217
  Transmission Date: 20100525
  Serious: Yes (Other)
  Sender: FDA-Public Use
  Company Number: CA-ROCHE-668667

PATIENT
  Age: 56 Year
  Sex: Female

DRUGS (1)
  1. TAMIFLU [Suspect]
     Indication: PROPHYLAXIS
     Route: 048
     Dates: start: 20091103, end: 20091104

REACTIONS (3)
  - CHEST DISCOMFORT [None]
  - HYPOAESTHESIA [None]
  - PARAESTHESIA [None]
